FAERS Safety Report 10394305 (Version 3)
Quarter: 2014Q3

REPORT INFORMATION
  Report Type: Report from Study
  Country: US (occurrence: US)
  Receive Date: 20140819
  Receipt Date: 20140912
  Transmission Date: 20150326
  Serious: Yes (Death, Hospitalization, Other)
  Sender: FDA-Public Use
  Company Number: US-BRISTOL-MYERS SQUIBB COMPANY-21297999

PATIENT
  Age: 70 Year
  Sex: Male
  Weight: 91.8 kg

DRUGS (13)
  1. IPILIMUMAB [Suspect]
     Active Substance: IPILIMUMAB
     Indication: SMALL CELL LUNG CANCER
     Dosage: DOSAGE:278MG?24JUL2014
     Route: 042
     Dates: start: 20140724
  2. PREDNISONE. [Concomitant]
     Active Substance: PREDNISONE
  3. DOPAMINE [Concomitant]
     Active Substance: DOPAMINE\DOPAMINE HYDROCHLORIDE
  4. VANCOMYCIN [Concomitant]
     Active Substance: VANCOMYCIN
  5. PRECEDEX [Concomitant]
     Active Substance: DEXMEDETOMIDINE HYDROCHLORIDE
  6. PROPOFOL. [Concomitant]
     Active Substance: PROPOFOL
  7. NIVOLUMAB [Suspect]
     Active Substance: NIVOLUMAB
     Indication: SMALL CELL LUNG CANCER
     Dosage: DOSAGE:91 MG?24JUL2014
     Route: 048
     Dates: start: 20140724
  8. VASOPRESSIN [Concomitant]
     Active Substance: VASOPRESSIN
  9. MESTINON [Suspect]
     Active Substance: PYRIDOSTIGMINE BROMIDE
  10. PANTOPRAZOLE [Concomitant]
     Active Substance: PANTOPRAZOLE SODIUM
  11. LEVOPHED [Concomitant]
     Active Substance: NOREPINEPHRINE BITARTRATE
  12. CEFUROXIME. [Concomitant]
     Active Substance: CEFUROXIME
  13. ZOSYN [Concomitant]
     Active Substance: PIPERACILLIN SODIUM\TAZOBACTAM SODIUM

REACTIONS (4)
  - Sepsis [Fatal]
  - Duodenal ulcer haemorrhage [Unknown]
  - Myasthenia gravis [Fatal]
  - Atrioventricular block complete [Recovered/Resolved]

NARRATIVE: CASE EVENT DATE: 20140808
